FAERS Safety Report 7594325-9 (Version None)
Quarter: 2011Q3

REPORT INFORMATION
  Report Type: 
  Country: None (occurrence: None)
  Receive Date: 20110706
  Receipt Date: 20110629
  Transmission Date: 20111222
  Serious: Yes (Hospitalization, Other)
  Sender: FDA-Public Use
  Company Number: US-ASTRAZENECA-2011SE39239

PATIENT
  Age: 50 Year
  Sex: Female

DRUGS (2)
  1. PLAVIX [Concomitant]
  2. SYMBICORT [Suspect]
     Route: 055

REACTIONS (2)
  - ARTERIAL DISORDER [None]
  - NECK EXPLORATION [None]
